FAERS Safety Report 10550856 (Version 1)
Quarter: 2014Q4

REPORT INFORMATION
  Report Type: Spontaneous
  Country: US (occurrence: None)
  Receive Date: 20141028
  Receipt Date: 20141028
  Transmission Date: 20150529
  Serious: Yes (Hospitalization, Other)
  Sender: FDA-Public Use
  Company Number: None

PATIENT
  Age: 59 Year
  Sex: Female
  Weight: 83.01 kg

DRUGS (1)
  1. BREO ELLIPTA [Suspect]
     Active Substance: FLUTICASONE FUROATE\VILANTEROL TRIFENATATE
     Indication: CHRONIC OBSTRUCTIVE PULMONARY DISEASE
     Dosage: 1 PUFF DAILY?ONCE DAILY ?INHALATION
     Route: 055
     Dates: start: 20140909, end: 20141025

REACTIONS (15)
  - Blood potassium decreased [None]
  - Nervousness [None]
  - Diabetes mellitus [None]
  - Joint swelling [None]
  - No therapeutic response [None]
  - Peripheral swelling [None]
  - Chest pain [None]
  - Pneumonia [None]
  - Agitation [None]
  - Anaemia [None]
  - Insomnia [None]
  - Adrenal disorder [None]
  - Fatigue [None]
  - Asthenia [None]
  - Nausea [None]
